FAERS Safety Report 15347112 (Version 1)
Quarter: 2018Q3

REPORT INFORMATION
  Report Type: Spontaneous
  Country: US (occurrence: US)
  Receive Date: 20180904
  Receipt Date: 20180904
  Transmission Date: 20181010
  Serious: No
  Sender: FDA-Public Use
  Company Number: US-BAYER-2018-162084

PATIENT
  Age: 72 Year
  Sex: Male
  Weight: 97 kg

DRUGS (3)
  1. MIRALAX [Suspect]
     Active Substance: POLYETHYLENE GLYCOL 3350
     Indication: GASTROINTESTINAL DISORDER
     Dosage: 1 DF, QD
     Route: 048
     Dates: start: 20180816, end: 20180822
  2. INSULIN [INSULIN] [Concomitant]
     Active Substance: INSULIN NOS
  3. INSULIN [INSULIN] [Concomitant]
     Active Substance: INSULIN NOS

REACTIONS (3)
  - Therapeutic response unexpected [Recovered/Resolved]
  - Drug effect delayed [Unknown]
  - Diarrhoea [Unknown]

NARRATIVE: CASE EVENT DATE: 20180816
